FAERS Safety Report 25985589 (Version 1)
Quarter: 2025Q4

REPORT INFORMATION
  Report Type: Spontaneous
  Country: EU (occurrence: EU)
  Receive Date: 20251101
  Receipt Date: 20251101
  Transmission Date: 20260118
  Serious: Yes (Hospitalization)
  Sender: TEVA
  Company Number: None

PATIENT
  Age: 61 Year
  Sex: Female

DRUGS (1)
  1. FENTANYL [Suspect]
     Active Substance: FENTANYL
     Indication: Product used for unknown indication
     Dosage: 25 MICROGRAMS/H
     Route: 065
     Dates: start: 20251005, end: 20251006

REACTIONS (2)
  - Depressed level of consciousness [Unknown]
  - Accidental poisoning [Unknown]

NARRATIVE: CASE EVENT DATE: 20251006
